FAERS Safety Report 4301495-4 (Version None)
Quarter: 2004Q1

REPORT INFORMATION
  Report Type: 
  Country: None (occurrence: None)
  Receive Date: 20040219
  Receipt Date: 20040209
  Transmission Date: 20041129
  Serious: Yes (Death)
  Sender: FDA-Public Use
  Company Number: S03-USA-04792-01

PATIENT
  Age: 55 Year
  Sex: Female

DRUGS (10)
  1. LEXAPRO [Suspect]
     Indication: DEPRESSION
     Dosage: 10 MG QD PO
     Route: 048
     Dates: start: 20031021, end: 20031101
  2. LANTUS [Concomitant]
  3. LASIX [Concomitant]
  4. ZOCOR [Concomitant]
  5. DIOVAN [Concomitant]
  6. VASOTEC [Concomitant]
  7. NORVASC [Concomitant]
  8. MINOXIDIL [Concomitant]
  9. XANAX [Concomitant]
  10. OXYGEN [Concomitant]

REACTIONS (1)
  - CARDIAC ARREST [None]
